FAERS Safety Report 6969890-2 (Version None)
Quarter: 2010Q3

REPORT INFORMATION
  Report Type: 
  Country: None (occurrence: None)
  Receive Date: 20100908
  Receipt Date: 20100830
  Transmission Date: 20110219
  Serious: Yes (Hospitalization)
  Sender: FDA-Public Use
  Company Number: JP-BAYER-201013800BYL

PATIENT
  Age: 49 Year
  Sex: Male
  Weight: 56 kg

DRUGS (2)
  1. NEXAVAR [Suspect]
     Indication: RENAL CELL CARCINOMA
     Dosage: TOTAL DAILY DOSE: 800 MG  UNIT DOSE: 200 MG
     Route: 048
     Dates: start: 20100716
  2. SUMIFERON DS [Concomitant]
     Dosage: TOTAL DAILY DOSE: 600 MIU
     Route: 058
     Dates: start: 20100524, end: 20100715

REACTIONS (2)
  - DYSPHONIA [None]
  - PLEURAL EFFUSION [None]
